FAERS Safety Report 6048605-9 (Version None)
Quarter: 2009Q1

REPORT INFORMATION
  Report Type: 
  Country: None (occurrence: None)
  Receive Date: 20090121
  Receipt Date: 20090121
  Transmission Date: 20090719
  Serious: Yes (Life-Threatening)
  Sender: FDA-Public Use
  Company Number: None

PATIENT
  Age: 55 Year
  Sex: Male
  Weight: 63.5036 kg

DRUGS (1)
  1. DILAUDID [Suspect]
     Indication: PAIN
     Dates: start: 20080110, end: 20080110

REACTIONS (1)
  - BLOOD PRESSURE DECREASED [None]
